FAERS Safety Report 11010784 (Version 1)
Quarter: 2015Q2

REPORT INFORMATION
  Report Type: Report from Study
  Country: US (occurrence: US)
  Receive Date: 20150410
  Receipt Date: 20150410
  Transmission Date: 20150821
  Serious: Yes (Life-Threatening, Hospitalization)
  Sender: FDA-Public Use
  Company Number: US-009507513-1504USA004892

PATIENT
  Age: 51 Year
  Sex: Female
  Weight: 115.3 kg

DRUGS (6)
  1. VORINOSTAT [Suspect]
     Active Substance: VORINOSTAT
     Dosage: 500 MG, TID
     Route: 048
     Dates: start: 20150316, end: 20150318
  2. IDARUBICIN [Suspect]
     Active Substance: IDARUBICIN
     Indication: ACUTE MYELOID LEUKAEMIA
     Dosage: 12 MG/M2, QD
     Route: 042
     Dates: start: 20150114, end: 20150115
  3. IDARUBICIN [Suspect]
     Active Substance: IDARUBICIN
     Dosage: 8 MG/M2, QD
     Route: 042
     Dates: start: 20150119, end: 20150129
  4. CYTARABINE. [Suspect]
     Active Substance: CYTARABINE
     Indication: ACUTE MYELOID LEUKAEMIA
     Dosage: TOTAL DOSE: 1500MG/M2 QD
     Route: 042
     Dates: start: 20150114, end: 20150117
  5. VORINOSTAT [Suspect]
     Active Substance: VORINOSTAT
     Indication: ACUTE MYELOID LEUKAEMIA
     Dosage: 500 MG, TID
     Route: 048
     Dates: start: 20150111, end: 20150113
  6. CYTARABINE. [Suspect]
     Active Substance: CYTARABINE
     Dosage: 750 MG/M2, ONCE
     Route: 042
     Dates: start: 20150319, end: 20150321

REACTIONS (3)
  - Chills [Unknown]
  - Neutrophil count decreased [Unknown]
  - Febrile neutropenia [Unknown]

NARRATIVE: CASE EVENT DATE: 20150403
